FAERS Safety Report 18267565 (Version 1)
Quarter: 2020Q3

REPORT INFORMATION
  Report Type: Spontaneous
  Country: DE (occurrence: DE)
  Receive Date: 20200915
  Receipt Date: 20200915
  Transmission Date: 20201103
  Serious: Yes (Disabling)
  Sender: FDA-Public Use
  Company Number: DE-TEVA-2020-DE-1826683

PATIENT
  Age: 68 Year
  Sex: Female
  Weight: 74 kg

DRUGS (1)
  1. TAMOXIFEN 20 MG [Suspect]
     Active Substance: TAMOXIFEN
     Indication: HORMONE RECEPTOR POSITIVE BREAST CANCER
     Dosage: 20 MG
     Route: 048
     Dates: start: 201701, end: 202006

REACTIONS (2)
  - Visual impairment [Recovered/Resolved with Sequelae]
  - Maculopathy [Recovered/Resolved with Sequelae]

NARRATIVE: CASE EVENT DATE: 20191231
